FAERS Safety Report 5048797-4 (Version None)
Quarter: 2006Q3

REPORT INFORMATION
  Report Type: 
  Country: None (occurrence: None)
  Receive Date: 20060705
  Receipt Date: 20060622
  Transmission Date: 20061208
  Serious: Yes (Other)
  Sender: FDA-Public Use
  Company Number: 2006077568

PATIENT
  Age: 60 Year
  Sex: Male

DRUGS (1)
  1. NORVASC [Suspect]
     Indication: HYPERTENSION
     Dosage: 2.5 MG, ORAL
     Route: 048
     Dates: start: 20060309, end: 20060607

REACTIONS (5)
  - DRUG ERUPTION [None]
  - ECZEMA [None]
  - ERYTHEMA MULTIFORME [None]
  - PURPURA [None]
  - SCAR [None]
